FAERS Safety Report 18131343 (Version 1)
Quarter: 2020Q3

REPORT INFORMATION
  Report Type: Spontaneous
  Country: JP (occurrence: JP)
  Receive Date: 20200810
  Receipt Date: 20200810
  Transmission Date: 20201103
  Serious: Yes (Other)
  Sender: FDA-Public Use
  Company Number: JP-OTSUKA-2020_018740

PATIENT
  Age: 72 Year
  Sex: Male

DRUGS (4)
  1. FUROSEMIDE. [Concomitant]
     Active Substance: FUROSEMIDE
     Indication: CARDIAC FAILURE
     Dosage: 40 MG, QD
     Route: 041
     Dates: start: 20200312
  2. SAMSCA [Suspect]
     Active Substance: TOLVAPTAN
     Indication: CARDIAC FAILURE
     Dosage: 7.5 MG, QD(AFTER BREAKFAST)
     Route: 048
     Dates: start: 20200312, end: 20200312
  3. NITROGLYCERIN. [Concomitant]
     Active Substance: NITROGLYCERIN
     Indication: CARDIAC FAILURE
     Dosage: 100 MG, QD
     Route: 041
     Dates: start: 20200312
  4. SAMSCA [Suspect]
     Active Substance: TOLVAPTAN
     Indication: CARDIAC FAILURE ACUTE

REACTIONS (1)
  - Rapid correction of hyponatraemia [Recovered/Resolved]

NARRATIVE: CASE EVENT DATE: 20200313
